FAERS Safety Report 16222315 (Version 1)
Quarter: 2019Q2

REPORT INFORMATION
  Report Type: Spontaneous
  Country: JP (occurrence: JP)
  Receive Date: 20190422
  Receipt Date: 20190422
  Transmission Date: 20190711
  Serious: Yes (Other)
  Sender: FDA-Public Use
  Company Number: JP-ELI_LILLY_AND_COMPANY-JP201904003284

PATIENT
  Age: 86 Year
  Sex: Female

DRUGS (3)
  1. CALONAL [Concomitant]
     Active Substance: ACETAMINOPHEN
     Dosage: 400 MG
     Route: 048
     Dates: end: 20190321
  2. FORTEO [Suspect]
     Active Substance: TERIPARATIDE
     Indication: OSTEOPOROSIS
     Dosage: 20 UG, DAILY
     Route: 058
     Dates: start: 20180918, end: 20190321
  3. CALCIUM L-ASPARTATE [Concomitant]
     Dosage: 800 MG
     Dates: end: 20190321

REACTIONS (2)
  - Hepatic function abnormal [Unknown]
  - Blood alkaline phosphatase increased [Not Recovered/Not Resolved]

NARRATIVE: CASE EVENT DATE: 20190319
